FAERS Safety Report 25995616 (Version 1)
Quarter: 2025Q4

REPORT INFORMATION
  Report Type: Spontaneous
  Country: EU (occurrence: EU)
  Receive Date: 20251104
  Receipt Date: 20251104
  Transmission Date: 20260118
  Serious: Yes (Other)
  Sender: ROCHE
  Company Number: None

PATIENT
  Age: 88 Year
  Sex: Male

DRUGS (12)
  1. RITUXIMAB [Suspect]
     Active Substance: RITUXIMAB
     Indication: Marginal zone lymphoma
     Route: 042
     Dates: start: 20250804
  2. VALACYCLOVIR HYDROCHLORIDE [Suspect]
     Active Substance: VALACYCLOVIR HYDROCHLORIDE
     Indication: Infection prophylaxis
     Dosage: 500 MG MORNING AND EVENING
     Route: 048
     Dates: start: 20250804
  3. OXAZEPAM [Suspect]
     Active Substance: OXAZEPAM
     Indication: Anxiety
     Route: 048
     Dates: start: 20250801
  4. CHLORAMBUCIL [Suspect]
     Active Substance: CHLORAMBUCIL
     Indication: Marginal zone lymphoma
     Dosage: 6 MG MALT SCHEME
     Route: 048
     Dates: start: 20250804, end: 20250901
  5. BACTRIM [Suspect]
     Active Substance: SULFAMETHOXAZOLE\TRIMETHOPRIM
     Indication: Infection prophylaxis
     Route: 048
     Dates: start: 20250804, end: 20250901
  6. RETACRIT [Suspect]
     Active Substance: EPOETIN ALFA-EPBX
     Indication: Anaemia
     Dosage: 1 INJECTION PER WEEK
     Route: 058
     Dates: start: 20250804
  7. GAVISCON, suspension buvable en sachet [Concomitant]
  8. SPASFON [Concomitant]
  9. IRBESARTAN [Concomitant]
     Active Substance: IRBESARTAN
  10. FENOFIBRATE [Concomitant]
     Active Substance: FENOFIBRATE
  11. NEBIVOLOL [Concomitant]
     Active Substance: NEBIVOLOL
  12. HYDROCHLOROTHIAZIDE [Concomitant]
     Active Substance: HYDROCHLOROTHIAZIDE

REACTIONS (1)
  - Drug reaction with eosinophilia and systemic symptoms [Recovering/Resolving]

NARRATIVE: CASE EVENT DATE: 20250828
